FAERS Safety Report 5157767-7 (Version None)
Quarter: 2006Q4

REPORT INFORMATION
  Report Type: 
  Country: None (occurrence: None)
  Receive Date: 20061115
  Receipt Date: 20061101
  Transmission Date: 20070319
  Serious: Yes (Hospitalization)
  Sender: FDA-Public Use
  Company Number: 8020076

PATIENT
  Sex: Female

DRUGS (3)
  1. KEPPRA [Suspect]
     Dosage: 750 MG 2/D TRP
  2. DEPAKINE CHRONOSPHERE [Suspect]
     Dosage: 50 MG 2/D TRP
  3. TRILEPTAL [Suspect]
     Dosage: 300 MG 3/D TRP

REACTIONS (4)
  - DRUG EXPOSURE DURING PREGNANCY [None]
  - NECROTISING ENTEROCOLITIS NEONATAL [None]
  - NEONATAL DISORDER [None]
  - POLYCYTHAEMIA [None]
